FAERS Safety Report 12174613 (Version 1)
Quarter: 2016Q1

REPORT INFORMATION
  Report Type: Spontaneous
  Country: ES (occurrence: ES)
  Receive Date: 20160312
  Receipt Date: 20160312
  Transmission Date: 20160526
  Serious: Yes (Other)
  Sender: FDA-Public Use
  Company Number: ES-AUROBINDO-AUR-APL-2016-03265

PATIENT
  Age: 56 Year
  Sex: Female

DRUGS (3)
  1. ASPIRIN 100MG [Suspect]
     Active Substance: ASPIRIN
     Indication: PRODUCT USED FOR UNKNOWN INDICATION
     Dosage: 100 MG, DAILY
     Route: 065
  2. CLOPIDOGREL [Suspect]
     Active Substance: CLOPIDOGREL BISULFATE
     Indication: PRODUCT USED FOR UNKNOWN INDICATION
     Dosage: 75 MG, DAILY
     Route: 065
  3. ABCIXIMAB [Suspect]
     Active Substance: ABCIXIMAB
     Indication: PRODUCT USED FOR UNKNOWN INDICATION
     Route: 065

REACTIONS (5)
  - Cerebral haemorrhage [Recovered/Resolved]
  - Labelled drug-drug interaction medication error [Recovered/Resolved]
  - Agitation [Recovered/Resolved]
  - Vascular stent thrombosis [Recovered/Resolved]
  - Haemodynamic instability [Recovered/Resolved]
